FAERS Safety Report 6592870-6 (Version None)
Quarter: 2010Q1

REPORT INFORMATION
  Report Type: 
  Country: None (occurrence: None)
  Receive Date: 20100218
  Receipt Date: 20100218
  Transmission Date: 20100710
  Serious: Yes (Life-Threatening, Hospitalization)
  Sender: FDA-Public Use
  Company Number: None

PATIENT
  Age: 66 Year
  Sex: Male
  Weight: 106.6 kg

DRUGS (1)
  1. AMOXICILLIN AND CLAVULANATE POTASSIUM [Suspect]
     Indication: UPPER RESPIRATORY TRACT INFECTION
     Dosage: 1 TAB BID PO
     Route: 048
     Dates: start: 20091011, end: 20091016

REACTIONS (11)
  - CHILLS [None]
  - DYSURIA [None]
  - ERYTHEMA MULTIFORME [None]
  - FATIGUE [None]
  - HOT FLUSH [None]
  - NAUSEA [None]
  - ODYNOPHAGIA [None]
  - OROPHARYNGEAL PAIN [None]
  - PURPURA [None]
  - TOXIC EPIDERMAL NECROLYSIS [None]
  - VOMITING [None]
